FAERS Safety Report 16580223 (Version 2)
Quarter: 2019Q3

REPORT INFORMATION
  Report Type: Report from Study
  Country: US (occurrence: US)
  Receive Date: 20190716
  Receipt Date: 20190826
  Transmission Date: 20191004
  Serious: Yes (Hospitalization)
  Sender: FDA-Public Use
  Company Number: US-GILEAD-2019-0414513

PATIENT
  Age: 41 Year
  Sex: Female
  Weight: 99 kg

DRUGS (66)
  1. CYCLOPHOSPHAMIDE. [Suspect]
     Active Substance: CYCLOPHOSPHAMIDE
     Dosage: 500
     Route: 042
     Dates: start: 20190609, end: 20190609
  2. FLUDARABINE [Suspect]
     Active Substance: FLUDARABINE PHOSPHATE
     Indication: BONE MARROW CONDITIONING REGIMEN
     Dosage: 30
     Route: 042
     Dates: start: 20190607, end: 20190607
  3. TOCILIZUMAB. [Concomitant]
     Active Substance: TOCILIZUMAB
     Indication: CYTOKINE RELEASE SYNDROME
     Dosage: 8 MG/KG X4, THEN AGAIN; 772,MG,DAILY
     Route: 041
     Dates: start: 20190617, end: 20190617
  4. ACYCLOVIR [ACICLOVIR] [Concomitant]
     Active Substance: ACYCLOVIR
     Dosage: 400,MG,THREE TIMES DAILY
     Route: 048
     Dates: start: 20190611, end: 20190615
  5. CHLORHEXIDINE [Concomitant]
     Active Substance: CHLORHEXIDINE
     Dosage: 15,ML,TWICE DAILY
     Route: 048
     Dates: start: 20190625, end: 20190625
  6. ACETAMINOPHEN. [Concomitant]
     Active Substance: ACETAMINOPHEN
     Dosage: 650,MG,DAILY
     Route: 048
     Dates: start: 20190612, end: 20190612
  7. DEXTROSE + SODIUM CHLORIDE [Concomitant]
     Dosage: 75,OTHER,AS NECESSARY
     Route: 041
     Dates: start: 20190615, end: 20190616
  8. PANTOPRAZOLE [Concomitant]
     Active Substance: PANTOPRAZOLE
     Dosage: 40,MG,DAILY
     Route: 048
     Dates: start: 20190626
  9. ERGOCALCIFEROL. [Concomitant]
     Active Substance: ERGOCALCIFEROL
     Dosage: 50,000,OTHER,OTHER
     Route: 048
     Dates: start: 20190619
  10. FLUDARABINE [Suspect]
     Active Substance: FLUDARABINE PHOSPHATE
     Dosage: 30
     Route: 042
     Dates: start: 20190609, end: 20190609
  11. DEXAMETHASONE. [Concomitant]
     Active Substance: DEXAMETHASONE
     Dosage: 10,MG,DAILY
     Route: 041
     Dates: start: 20190613, end: 20190613
  12. DEXAMETHASONE. [Concomitant]
     Active Substance: DEXAMETHASONE
     Dosage: 10,MG,DAILY
     Route: 041
     Dates: start: 20190616, end: 20190616
  13. POTASSIUM CHLORIDE. [Concomitant]
     Active Substance: POTASSIUM CHLORIDE
     Dosage: 20,OTHER,AS NECESSARY
     Route: 041
     Dates: start: 20190611, end: 20190626
  14. ACYCLOVIR [ACICLOVIR] [Concomitant]
     Active Substance: ACYCLOVIR
     Dosage: 400,MG,THREE TIMES DAILY
     Route: 048
     Dates: start: 20190626
  15. ACETAMINOPHEN. [Concomitant]
     Active Substance: ACETAMINOPHEN
     Dosage: 1000,MG,DAILY
     Route: 041
     Dates: start: 20190617, end: 20190618
  16. LACTATED RINGERS SOLUTION [Concomitant]
     Active Substance: CALCIUM CHLORIDE\POTASSIUM CHLORIDE\SODIUM CHLORIDE\SODIUM LACTATE
     Dosage: 75-100,OTHER,AS NECESSARY
     Route: 041
     Dates: start: 20190618, end: 20190623
  17. PANTOPRAZOLE [Concomitant]
     Active Substance: PANTOPRAZOLE
     Dosage: 40,MG,AS NECESSARY
     Route: 041
     Dates: start: 20190616, end: 20190626
  18. HYDROMORPHONE [Concomitant]
     Active Substance: HYDROMORPHONE
     Dosage: 0.2-0.4,MG,AS NECESSARY
     Route: 041
     Dates: start: 20190617, end: 20190625
  19. IPRATROPIUM BROMIDE AND ALBUTEROL SULFATE [Concomitant]
     Active Substance: ALBUTEROL SULFATE\IPRATROPIUM BROMIDE
     Dosage: 3,ML,TWICE DAILY
     Route: 055
     Dates: start: 20190619, end: 20190620
  20. FLUDARABINE [Suspect]
     Active Substance: FLUDARABINE PHOSPHATE
     Dosage: 30
     Route: 042
     Dates: start: 20190608, end: 20190608
  21. SODIUM CHLORIDE 0.9% [Concomitant]
     Active Substance: SODIUM CHLORIDE
     Dosage: 10,OTHER,DAILY
     Route: 041
     Dates: start: 20190612, end: 20190612
  22. CHLORHEXIDINE [Concomitant]
     Active Substance: CHLORHEXIDINE
     Dosage: 4,OTHER,AS NECESSARY
     Route: 061
     Dates: start: 20190612, end: 20190625
  23. DIPHENHYDRAMINE. [Concomitant]
     Active Substance: DIPHENHYDRAMINE
     Dosage: 12.5,MG,DAILY
     Route: 041
     Dates: start: 20190612, end: 20190612
  24. FOLIC ACID. [Concomitant]
     Active Substance: FOLIC ACID
     Dosage: 1,MG,AS NECESSARY
     Route: 048
     Dates: start: 20190613
  25. CEFTAZIDIME. [Concomitant]
     Active Substance: CEFTAZIDIME
     Dosage: 2,G,THREE TIMES DAILY
     Route: 041
     Dates: start: 20190613, end: 20190620
  26. THIAMINE. [Concomitant]
     Active Substance: THIAMINE
     Dosage: 100,MG,DAILY
     Route: 048
     Dates: start: 20190613, end: 20190615
  27. CLOTRIMAZOLE. [Concomitant]
     Active Substance: CLOTRIMAZOLE
     Dosage: 10,MG,AS NECESSARY
     Route: 048
     Dates: start: 20190621, end: 20190624
  28. AXICABTAGENE CILOLEUCEL [Suspect]
     Active Substance: AXICABTAGENE CILOLEUCEL
     Indication: PRIMARY MEDIASTINAL LARGE B-CELL LYMPHOMA
     Dosage: UNK
     Route: 042
     Dates: start: 20190612, end: 20190612
  29. DEXAMETHASONE. [Concomitant]
     Active Substance: DEXAMETHASONE
     Indication: CYTOKINE RELEASE SYNDROME
     Dosage: 10 MG X3, THEN AGAIN; 10,MG,DAILY
     Route: 041
     Dates: start: 20190617, end: 20190617
  30. DEXAMETHASONE. [Concomitant]
     Active Substance: DEXAMETHASONE
     Dosage: 10 MG
     Dates: start: 20190618
  31. TOCILIZUMAB. [Concomitant]
     Active Substance: TOCILIZUMAB
     Dosage: 8 MG/KG
     Dates: start: 20190618
  32. SODIUM CHLORIDE 0.9% [Concomitant]
     Active Substance: SODIUM CHLORIDE
     Dosage: 500-1000,ML,DAILY; BOLUS
     Route: 041
     Dates: start: 20190624, end: 20190625
  33. PRAMOXINE [Concomitant]
     Active Substance: PRAMOXINE
     Dosage: 1,OTHER,AS NECESSARY
     Route: 061
     Dates: start: 20190611, end: 20190623
  34. CHLORHEXIDINE GLUCONATE. [Concomitant]
     Active Substance: CHLORHEXIDINE GLUCONATE
     Dosage: 2,OTHER,AS NECESSARY
     Route: 061
     Dates: start: 20190614, end: 20190626
  35. POLYETHYLENE GLYCOL [Concomitant]
     Active Substance: POLYETHYLENE GLYCOLS
     Dosage: 17,G,DAILY
     Route: 048
     Dates: start: 20190616, end: 20190616
  36. ENOXAPARIN [Concomitant]
     Active Substance: ENOXAPARIN
     Dosage: 100,MG,AS NECESSARY
     Route: 058
     Dates: start: 20190618, end: 20190626
  37. PHENAZOPYRIDINE. [Concomitant]
     Active Substance: PHENAZOPYRIDINE
     Dosage: 200,MG,DAILY
     Route: 048
     Dates: start: 20190619, end: 20190620
  38. LEVOFLOXACIN. [Concomitant]
     Active Substance: LEVOFLOXACIN
     Dosage: 500,MG,DAILY
     Route: 048
     Dates: start: 20190611, end: 20190612
  39. MAGNESIUM SULFATE. [Concomitant]
     Active Substance: MAGNESIUM SULFATE
     Dosage: 2,G,AS NECESSARY
     Route: 041
     Dates: start: 20190612, end: 20190626
  40. LEVETIRACETAM. [Concomitant]
     Active Substance: LEVETIRACETAM
     Dosage: 750,MG,DAILY
     Route: 048
     Dates: start: 20190615
  41. CALCIUM CARBONATE. [Concomitant]
     Active Substance: CALCIUM CARBONATE
     Dosage: 1000,MG,DAILY
     Route: 048
     Dates: start: 20190619, end: 20190619
  42. CHOLECALCIFEROL [Concomitant]
     Active Substance: CHOLECALCIFEROL
     Dosage: 2,000,OTHER,DAILY
     Route: 048
     Dates: start: 20190620
  43. AMOXICILLIN AND CLAVUNATE POTASSIUM [Concomitant]
     Active Substance: AMOXICILLIN\CLAVULANATE POTASSIUM
     Dosage: 875/125,MG,DAILY
     Route: 048
     Dates: start: 20190623, end: 20190624
  44. OXYCODONE [Concomitant]
     Active Substance: OXYCODONE
     Dosage: 10,MG,AS NECESSARY
     Route: 048
     Dates: start: 20190611, end: 20190701
  45. ATOVAQUONE. [Concomitant]
     Active Substance: ATOVAQUONE
     Dosage: 1500,MG,AS NECESSARY
     Route: 048
     Dates: start: 20190612
  46. LORAZEPAM. [Concomitant]
     Active Substance: LORAZEPAM
     Dosage: 0.5-1,MG,AS NECESSARY
     Route: 041
     Dates: start: 20190615, end: 20190618
  47. CYCLOPHOSPHAMIDE. [Suspect]
     Active Substance: CYCLOPHOSPHAMIDE
     Indication: BONE MARROW CONDITIONING REGIMEN
     Dosage: 500
     Route: 042
     Dates: start: 20190607, end: 20190607
  48. DEXAMETHASONE. [Concomitant]
     Active Substance: DEXAMETHASONE
     Dosage: 10,MG,TWICE DAILY
     Route: 041
     Dates: start: 20190615, end: 20190615
  49. TOCILIZUMAB. [Concomitant]
     Active Substance: TOCILIZUMAB
     Dosage: 780, MG, DAILY
     Route: 041
     Dates: start: 20190613, end: 20190613
  50. PROCHLORPERAZINE. [Concomitant]
     Active Substance: PROCHLORPERAZINE
     Dosage: 5-10,MG,AS NECESSARY
     Route: 048
     Dates: start: 20190607
  51. APIXABAN [Concomitant]
     Active Substance: APIXABAN
     Dosage: 5,MG,TWICE DAILY
     Route: 048
     Dates: start: 20190607
  52. ACETAMINOPHEN. [Concomitant]
     Active Substance: ACETAMINOPHEN
     Dosage: 650,MG,AS NECESSARY
     Route: 048
     Dates: start: 20190613, end: 20190617
  53. OMEPRAZOLE. [Concomitant]
     Active Substance: OMEPRAZOLE
     Dosage: 40,MG,AS NECESSARY
     Route: 048
     Dates: start: 20190613, end: 20190624
  54. MULTIVITAMINS [VITAMINS NOS] [Concomitant]
     Active Substance: VITAMINS
     Dosage: 1,OTHER,AS NECESSARY
     Route: 048
     Dates: start: 20190613
  55. LACTATED RINGERS SOLUTION [Concomitant]
     Active Substance: CALCIUM CHLORIDE\POTASSIUM CHLORIDE\SODIUM CHLORIDE\SODIUM LACTATE
     Dosage: 500-1000,ML,AS NECESSARY; IV BOLUS
     Route: 041
     Dates: start: 20190613, end: 20190621
  56. METRONIDAZOLE. [Concomitant]
     Active Substance: METRONIDAZOLE
     Dosage: 500,MG,THREE TIMES DAILY
     Route: 041
     Dates: start: 20190617, end: 20190623
  57. CEFTRIAXONE. [Concomitant]
     Active Substance: CEFTRIAXONE
     Dosage: 1,G,DAILY
     Route: 041
     Dates: start: 20190621, end: 20190622
  58. CYCLOPHOSPHAMIDE. [Suspect]
     Active Substance: CYCLOPHOSPHAMIDE
     Dosage: 500
     Route: 042
     Dates: start: 20190608, end: 20190608
  59. SODIUM CHLORIDE 0.9% [Concomitant]
     Active Substance: SODIUM CHLORIDE
     Dosage: 1000,OTHER,DAILY
     Route: 041
     Dates: start: 20190610, end: 20190610
  60. SODIUM CHLORIDE 0.9% [Concomitant]
     Active Substance: SODIUM CHLORIDE
     Dosage: 75,OTHER,DAILY
     Route: 041
     Dates: start: 20190624, end: 20190625
  61. MAGNESIUM OXIDE. [Concomitant]
     Active Substance: MAGNESIUM OXIDE
     Dosage: 400,MG,AS NECESSARY
     Route: 048
     Dates: start: 20190611, end: 20190624
  62. ACYCLOVIR [ACICLOVIR] [Concomitant]
     Active Substance: ACYCLOVIR
     Dosage: 200,MG,THREE TIMES DAILY
     Route: 041
     Dates: start: 20190615, end: 20190626
  63. OMEPRAZOLE. [Concomitant]
     Active Substance: OMEPRAZOLE
     Dosage: 20,MG,TWICE DAILY
     Route: 048
     Dates: start: 20190612, end: 20190612
  64. SENNA [SENNA ALEXANDRINA] [Concomitant]
     Active Substance: SENNA LEAF
     Dosage: 2,OTHER,AS NECESSARY
     Route: 048
     Dates: start: 20190615, end: 20190616
  65. DEXTROSE + SODIUM CHLORIDE [Concomitant]
     Dosage: 75,OTHER,AS NECESSARY  (D5-1/2 NS)
     Route: 041
     Dates: start: 20190625, end: 20190626
  66. PERFLUTREN [Concomitant]
     Active Substance: PERFLUTREN
     Dosage: 3,ML,DAILY
     Route: 041
     Dates: start: 20190619, end: 20190619

REACTIONS (4)
  - Confusional state [Recovered/Resolved]
  - Agitation [Recovered/Resolved]
  - Oesophageal obstruction [Recovered/Resolved]
  - Oesophageal fistula [Recovered/Resolved with Sequelae]

NARRATIVE: CASE EVENT DATE: 20190618
